FAERS Safety Report 14122730 (Version 2)
Quarter: 2017Q4

REPORT INFORMATION
  Report Type: Report from Study
  Country: US (occurrence: US)
  Receive Date: 20171025
  Receipt Date: 20171122
  Transmission Date: 20180321
  Serious: Yes (Hospitalization)
  Sender: FDA-Public Use
  Company Number: US-EMD SERONO-E2B_80085980

PATIENT
  Sex: Female
  Weight: 57 kg

DRUGS (2)
  1. REBIF [Suspect]
     Active Substance: INTERFERON BETA-1A
     Indication: MULTIPLE SCLEROSIS
     Route: 058
     Dates: start: 20071012
  2. REBIF [Suspect]
     Active Substance: INTERFERON BETA-1A
     Route: 058
     Dates: start: 2016, end: 201706

REACTIONS (6)
  - General physical health deterioration [Unknown]
  - Asthenia [Unknown]
  - Injection site nodule [Recovered/Resolved]
  - Injection site discomfort [Unknown]
  - Injection site swelling [Recovered/Resolved]
  - Balance disorder [Unknown]
